FAERS Safety Report 6152310-8 (Version None)
Quarter: 2009Q2

REPORT INFORMATION
  Report Type: 
  Country: None (occurrence: None)
  Receive Date: 20090410
  Receipt Date: 20070301
  Transmission Date: 20091009
  Serious: Yes (Death, Hospitalization)
  Sender: FDA-Public Use
  Company Number: DE-GENENTECH-235893

PATIENT
  Sex: Female
  Weight: 52 kg

DRUGS (10)
  1. RITUXIMAB [Suspect]
     Indication: NON-HODGKIN'S LYMPHOMA
     Dosage: 588 MG, UNK
     Route: 042
     Dates: start: 20060729
  2. CYCLOPHOSPHAMIDE [Concomitant]
     Indication: NON-HODGKIN'S LYMPHOMA
     Dosage: 1179.8 MG, UNK
     Route: 065
     Dates: start: 20060725
  3. DOXORUBICIN [Concomitant]
     Indication: NON-HODGKIN'S LYMPHOMA
     Dosage: 78.6 MG, UNK
     Route: 065
     Dates: start: 20060725
  4. ONCOVIN [Concomitant]
     Indication: NON-HODGKIN'S LYMPHOMA
     Dosage: 578 MG, UNK
     Route: 065
     Dates: start: 20060725
  5. PREDNISONE TAB [Concomitant]
     Indication: NON-HODGKIN'S LYMPHOMA
     Dosage: 578 MG, UNK
     Route: 065
     Dates: start: 20060825
  6. COTRIM [Concomitant]
     Indication: DRUG USE FOR UNKNOWN INDICATION
     Dates: start: 20060913
  7. ACYCLOVIR [Concomitant]
     Indication: DRUG USE FOR UNKNOWN INDICATION
     Dosage: 400 MG, UNK
  8. LENOGRASTIM [Concomitant]
     Indication: DRUG USE FOR UNKNOWN INDICATION
     Dosage: 263 A?G, UNK
     Dates: start: 20060915
  9. BISOPROLOL FUMARATE [Concomitant]
     Indication: DRUG USE FOR UNKNOWN INDICATION
  10. BASAL-H-INSULIN [Concomitant]
     Indication: DRUG USE FOR UNKNOWN INDICATION

REACTIONS (4)
  - AGRANULOCYTOSIS [None]
  - MULTI-ORGAN FAILURE [None]
  - PANCREATITIS [None]
  - SEPSIS [None]
